FAERS Safety Report 9742810 (Version 2)
Quarter: 2013Q4

REPORT INFORMATION
  Report Type: Spontaneous
  Country: JP (occurrence: JP)
  Receive Date: 20131210
  Receipt Date: 20131210
  Transmission Date: 20140711
  Serious: Yes (Hospitalization)
  Sender: FDA-Public Use
  Company Number: JP-PFIZER INC-2013346738

PATIENT
  Age: 25 Year
  Sex: Male

DRUGS (1)
  1. SOLANAX [Suspect]
     Dosage: 28 MG (70 TABLETS OF 0.4 MG), UNK

REACTIONS (3)
  - Intentional overdose [Unknown]
  - Suicide attempt [Unknown]
  - Somnolence [Recovered/Resolved]
